FAERS Safety Report 5652910-5 (Version None)
Quarter: 2008Q1

REPORT INFORMATION
  Report Type: 
  Country: None (occurrence: None)
  Receive Date: 20080306
  Receipt Date: 20080228
  Transmission Date: 20080703
  Serious: Yes (Death, Other)
  Sender: FDA-Public Use
  Company Number: KR-BAYER-200814112GPV

PATIENT
  Age: 67 Year
  Sex: Male
  Weight: 41 kg

DRUGS (5)
  1. FLUDARA [Suspect]
     Indication: ACUTE MYELOID LEUKAEMIA
     Dosage: TOTAL DAILY DOSE: 38 MG
     Route: 041
     Dates: start: 20080205, end: 20080208
  2. CYTARABINE [Concomitant]
     Indication: ACUTE MYELOID LEUKAEMIA
     Dates: start: 20080205, end: 20080208
  3. IDARUBICIN HCL [Concomitant]
     Indication: ACUTE MYELOID LEUKAEMIA
     Dates: start: 20080205, end: 20080208
  4. NASEA [Concomitant]
     Dates: start: 20080205, end: 20080208
  5. TAZOCIN [Concomitant]
     Dates: start: 20080205, end: 20080208

REACTIONS (5)
  - ACUTE MYELOID LEUKAEMIA [None]
  - DYSPNOEA [None]
  - HAEMATURIA [None]
  - HYPERBILIRUBINAEMIA [None]
  - PYREXIA [None]
